FAERS Safety Report 8476816 (Version 2)
Quarter: 2013Q1

REPORT INFORMATION
  Report Type: Spontaneous
  Country: JP (occurrence: JP)
  Receive Date: 20120326
  Receipt Date: 20130115
  Transmission Date: 20140127
  Serious: Yes (Other)
  Sender: FDA-Public Use
  Company Number: PHHY2012JP020445

PATIENT
  Age: 10 Year
  Sex: Male

DRUGS (7)
  1. NEORAL [Suspect]
     Indication: PROPHYLAXIS AGAINST GRAFT VERSUS HOST DISEASE
     Dosage: UNK UKN, UNK
     Route: 065
  2. NEORAL [Suspect]
     Indication: STEM CELL TRANSPLANT
  3. METHOTREXATE [Suspect]
     Indication: PROPHYLAXIS AGAINST GRAFT VERSUS HOST DISEASE
     Dosage: UNK UKN, UNK
  4. CYTOSINE ARABINOSIDE [Concomitant]
     Dosage: UNK UKN, UNK
  5. CYCLOPHOSPHAMIDE [Concomitant]
     Dosage: UNK UKN, UNK
  6. IRRADIATION [Concomitant]
     Dosage: 12 GY, UNK
  7. CYTARABINE [Concomitant]

REACTIONS (10)
  - Oesophageal carcinoma [Unknown]
  - Metastases to lung [Unknown]
  - Squamous cell carcinoma [Unknown]
  - Dysphagia [Unknown]
  - Sensation of foreign body [Unknown]
  - Metastases to lymph nodes [Unknown]
  - Weight decreased [Unknown]
  - Acute graft versus host disease in skin [Unknown]
  - Chronic graft versus host disease [Unknown]
  - Acute graft versus host disease in intestine [Unknown]
